FAERS Safety Report 5791909-5 (Version None)
Quarter: 2008Q2

REPORT INFORMATION
  Report Type: 
  Country: None (occurrence: None)
  Receive Date: 20080626
  Receipt Date: 20080312
  Transmission Date: 20081010
  Serious: No
  Sender: FDA-Public Use
  Company Number: A0714868A

PATIENT
  Age: 51 Year
  Sex: Female

DRUGS (5)
  1. ALLI [Suspect]
  2. FIBER [Concomitant]
  3. PRINIVIL [Concomitant]
  4. ANTI-STRESS MEDICATION [Concomitant]
  5. GLUCOPHAGE [Concomitant]

REACTIONS (2)
  - CONSTIPATION [None]
  - WEIGHT INCREASED [None]
